FAERS Safety Report 14151467 (Version 1)
Quarter: 2017Q4

REPORT INFORMATION
  Report Type: Spontaneous
  Country: US (occurrence: US)
  Receive Date: 20171102
  Receipt Date: 20171102
  Transmission Date: 20180321
  Serious: No
  Sender: FDA-Public Use
  Company Number: US-PFIZER INC-2017469688

PATIENT
  Age: 81 Year
  Sex: Female
  Weight: 92.53 kg

DRUGS (2)
  1. GABAPENTIN. [Concomitant]
     Active Substance: GABAPENTIN
     Dosage: 2X/DAY (600MG IN THE MORNING, 1200MG AT NIGHT)
     Dates: start: 2017
  2. LYRICA [Suspect]
     Active Substance: PREGABALIN
     Dosage: 50 MG,(FIRST DAY TOOK ONCE AT NIGHT, AND TWICE A DAY UNTIL  STOPPING)
     Route: 048
     Dates: start: 20171012, end: 20171027

REACTIONS (2)
  - Pain [Unknown]
  - Neuropathy peripheral [Unknown]

NARRATIVE: CASE EVENT DATE: 201710
